FAERS Safety Report 5201782-1 (Version None)
Quarter: 2006Q4

REPORT INFORMATION
  Report Type: 
  Country: None (occurrence: None)
  Receive Date: 20061002
  Receipt Date: 20060531
  Transmission Date: 20070319
  Serious: Yes (Hospitalization)
  Sender: FDA-Public Use
  Company Number: TPA2006A00908

PATIENT
  Age: 60 Year
  Sex: Male
  Weight: 95.2554 kg

DRUGS (9)
  1. ACTOS [Suspect]
     Indication: DIABETES MELLITUS NON-INSULIN-DEPENDENT
     Dosage: 30 MG, 1 IN 1 D, PER ORAL
     Route: 048
     Dates: start: 20060116, end: 20060201
  2. METFORMIN HCL [Concomitant]
  3. GLIPIZIDE [Concomitant]
  4. COUMADIN [Concomitant]
  5. LOTENSIN [Concomitant]
  6. CLONIDINE [Concomitant]
  7. LIPITOR [Concomitant]
  8. CARDIA (ALL OTHER THERAPEUTIC PRODUCTS) [Concomitant]
  9. METOPROLOL TARTRATE [Concomitant]

REACTIONS (3)
  - CARDIAC FAILURE CONGESTIVE [None]
  - FLUID RETENTION [None]
  - WEIGHT INCREASED [None]
